FAERS Safety Report 9436719 (Version 2)
Quarter: 2013Q3

REPORT INFORMATION
  Report Type: Report from Study
  Country: JP (occurrence: JP)
  Receive Date: 20130802
  Receipt Date: 20130923
  Transmission Date: 20140515
  Serious: Yes (Other)
  Sender: FDA-Public Use
  Company Number: JP-JNJFOC-20130716609

PATIENT
  Age: 72 Year
  Sex: Female
  Weight: 62 kg

DRUGS (13)
  1. GOLIMUMAB [Suspect]
     Indication: RHEUMATOID ARTHRITIS
     Route: 058
     Dates: start: 20120712, end: 20120712
  2. GOLIMUMAB [Suspect]
     Indication: RHEUMATOID ARTHRITIS
     Route: 058
     Dates: start: 20120614, end: 20120614
  3. GOLIMUMAB [Suspect]
     Indication: RHEUMATOID ARTHRITIS
     Route: 058
     Dates: start: 20120517, end: 20120517
  4. GOLIMUMAB [Suspect]
     Indication: RHEUMATOID ARTHRITIS
     Route: 058
     Dates: start: 20120420, end: 20120420
  5. METHOTREXATE [Concomitant]
     Indication: RHEUMATOID ARTHRITIS
     Route: 065
  6. VOLTAREN [Concomitant]
     Indication: RHEUMATOID ARTHRITIS
     Route: 054
  7. CELECOX [Concomitant]
     Indication: RHEUMATOID ARTHRITIS
     Dosage: DOSE: 1 DF
     Route: 048
  8. FOLIAMIN [Concomitant]
     Indication: PROPHYLAXIS
     Dosage: DOSE: 1 DF
     Route: 048
  9. METHYCOBAL [Concomitant]
     Indication: PROPHYLAXIS
     Dosage: DOSE: 1 DF
     Route: 048
  10. SELBEX [Concomitant]
     Indication: PROPHYLAXIS
     Dosage: DOSE: 1 DF
     Route: 048
  11. MAGMITT [Concomitant]
     Indication: PROPHYLAXIS
     Dosage: DOSE: 1 DF
     Route: 048
  12. HEPARINOID [Concomitant]
     Indication: PROPHYLAXIS
     Dosage: DOSE: 1 DF
     Route: 061
  13. DIART [Concomitant]
     Indication: PROPHYLAXIS
     Dosage: DOSE: 1 DF
     Route: 048

REACTIONS (1)
  - Cellulitis [Recovered/Resolved]
